FAERS Safety Report 19252503 (Version 4)
Quarter: 2021Q4

REPORT INFORMATION
  Report Type: Report from Study
  Country: US (occurrence: US)
  Receive Date: 20210512
  Receipt Date: 20211013
  Transmission Date: 20220303
  Serious: Yes (Hospitalization, Other)
  Sender: FDA-Public Use
  Company Number: US-BOEHRINGERINGELHEIM-2020-BI-016056

PATIENT
  Age: 79 Year
  Sex: Male

DRUGS (1)
  1. OFEV [Suspect]
     Active Substance: NINTEDANIB
     Indication: Idiopathic pulmonary fibrosis
     Dosage: 150 MG BY MOUTH TWICE DAILY
     Route: 048
     Dates: start: 20151104

REACTIONS (6)
  - Gastrointestinal ulcer haemorrhage [Not Recovered/Not Resolved]
  - Spinal stenosis [Unknown]
  - Intentional dose omission [Unknown]
  - Illness [Unknown]
  - Gastric ulcer [Unknown]
  - Procedural pain [Unknown]

NARRATIVE: CASE EVENT DATE: 20200301
